FAERS Safety Report 21355682 (Version 1)
Quarter: 2022Q3

REPORT INFORMATION
  Report Type: Spontaneous
  Country: US (occurrence: US)
  Receive Date: 20220920
  Receipt Date: 20220920
  Transmission Date: 20221027
  Serious: No
  Sender: FDA-Public Use
  Company Number: US-GE HEALTHCARE-2022CSU004887

PATIENT
  Age: 27 Year
  Sex: Male
  Weight: 81.633 kg

DRUGS (6)
  1. OMNIPAQUE [Suspect]
     Active Substance: IOHEXOL
     Indication: Computerised tomogram thorax
     Dosage: 100 ML, SINGLE
     Route: 042
     Dates: start: 20220711, end: 20220711
  2. OMNIPAQUE [Suspect]
     Active Substance: IOHEXOL
     Indication: Computerised tomogram abdomen
  3. OMNIPAQUE [Suspect]
     Active Substance: IOHEXOL
     Indication: Injury
  4. OMNIPAQUE [Suspect]
     Active Substance: IOHEXOL
     Indication: Costovertebral angle tenderness
  5. OMNIPAQUE [Suspect]
     Active Substance: IOHEXOL
     Indication: Haematuria
  6. OMNIPAQUE [Suspect]
     Active Substance: IOHEXOL
     Indication: Road traffic accident

REACTIONS (2)
  - Sneezing [Recovered/Resolved]
  - Throat tightness [Recovered/Resolved]

NARRATIVE: CASE EVENT DATE: 20220711
